FAERS Safety Report 14924640 (Version 1)
Quarter: 2018Q2

REPORT INFORMATION
  Report Type: Spontaneous
  Country: US (occurrence: US)
  Receive Date: 20180522
  Receipt Date: 20180522
  Transmission Date: 20180711
  Serious: No
  Sender: FDA-Public Use
  Company Number: US-BIOGEN-2018BI00579158

PATIENT
  Sex: Female

DRUGS (2)
  1. TECFIDERA [Suspect]
     Active Substance: DIMETHYL FUMARATE
     Indication: MULTIPLE SCLEROSIS
     Route: 048
     Dates: start: 20131223
  2. TECFIDERA [Suspect]
     Active Substance: DIMETHYL FUMARATE
     Dates: start: 20180314

REACTIONS (3)
  - Multiple sclerosis relapse [Not Recovered/Not Resolved]
  - Vomiting [Unknown]
  - Back pain [Not Recovered/Not Resolved]
